FAERS Safety Report 23530453 (Version 2)
Quarter: 2024Q1

REPORT INFORMATION
  Report Type: Spontaneous
  Country: US (occurrence: US)
  Receive Date: 20240216
  Receipt Date: 20240222
  Transmission Date: 20240410
  Serious: Yes (Other)
  Sender: FDA-Public Use
  Company Number: US-GLENMARK PHARMACEUTICALS-2024GMK088922

PATIENT

DRUGS (1)
  1. CLINDAMYCIN HYDROCHLORIDE [Suspect]
     Active Substance: CLINDAMYCIN HYDROCHLORIDE
     Indication: Eye infection toxoplasmal
     Dosage: 0.1 MILLILITER, (INTRAVITREAL CLINDAMYCIN AT A DOSAGE OF 1.0 MG IN 0.1ML IN THE LEFT EYE)

REACTIONS (2)
  - Retinopathy [Unknown]
  - Retinal deposits [Unknown]
